FAERS Safety Report 10201738 (Version 1)
Quarter: 2014Q2

REPORT INFORMATION
  Report Type: Spontaneous
  Country: US (occurrence: US)
  Receive Date: 20140528
  Receipt Date: 20140528
  Transmission Date: 20141212
  Serious: No
  Sender: FDA-Public Use
  Company Number: US-BRISTOL-MYERS SQUIBB COMPANY-19034248

PATIENT
  Age: 77 Year
  Sex: Male
  Weight: 90.7 kg

DRUGS (1)
  1. METFORMIN HCL [Suspect]
     Dosage: FROM 1000MG TO HALF A PILL PER DAY

REACTIONS (1)
  - Blood potassium decreased [Unknown]
